FAERS Safety Report 16064117 (Version 7)
Quarter: 2023Q1

REPORT INFORMATION
  Report Type: Spontaneous
  Country: PT (occurrence: PT)
  Receive Date: 20190312
  Receipt Date: 20230303
  Transmission Date: 20230417
  Serious: Yes (Life-Threatening, Hospitalization, Other)
  Sender: FDA-Public Use
  Company Number: None

PATIENT
  Age: 41 Year
  Sex: Male

DRUGS (5)
  1. AMOXICILLIN\CLAVULANIC ACID [Suspect]
     Active Substance: AMOXICILLIN\CLAVULANIC ACID
     Indication: Antibiotic therapy
     Dosage: UNK UNK, UNKNOWN FREQ.
     Route: 048
  2. AMOXICILLIN\CLAVULANIC ACID [Suspect]
     Active Substance: AMOXICILLIN\CLAVULANIC ACID
     Indication: Pneumonia
  3. AZITHROMYCIN [Suspect]
     Active Substance: AZITHROMYCIN
     Indication: Antibiotic therapy
     Dosage: UNK UNK, UNKNOWN FREQ.
     Route: 048
  4. AZITHROMYCIN [Suspect]
     Active Substance: AZITHROMYCIN
     Indication: Pneumonia
  5. CEFUROXIME [Suspect]
     Active Substance: CEFUROXIME
     Indication: Pneumonia
     Dosage: UNK UNK, UNKNOWN FREQ.
     Route: 048

REACTIONS (11)
  - Oral disorder [Unknown]
  - Conjunctival hyperaemia [Unknown]
  - Rash [Unknown]
  - Pyrexia [Unknown]
  - Odynophagia [Unknown]
  - Stevens-Johnson syndrome [Unknown]
  - Rash pustular [Unknown]
  - Oral mucosal exfoliation [Unknown]
  - Leukocytosis [Unknown]
  - Oropharyngeal plaque [Unknown]
  - Off label use [Unknown]
